FAERS Safety Report 4934000-X (Version None)
Quarter: 2006Q1

REPORT INFORMATION
  Report Type: 
  Country: None (occurrence: None)
  Receive Date: 20060307
  Receipt Date: 20060224
  Transmission Date: 20060701
  Serious: Yes (Hospitalization)
  Sender: FDA-Public Use
  Company Number: GB-AVENTIS-200611215EU

PATIENT
  Age: 78 Year
  Sex: Male

DRUGS (6)
  1. FRUSEMIDE [Suspect]
     Route: 048
     Dates: end: 20060124
  2. OMEPRAZOLE [Suspect]
     Route: 048
     Dates: end: 20060124
  3. GLICLAZIDE [Concomitant]
     Indication: DIABETES MELLITUS NON-INSULIN-DEPENDENT
     Route: 048
  4. METFORMIN [Concomitant]
     Indication: DIABETES MELLITUS NON-INSULIN-DEPENDENT
     Route: 048
  5. ENALAPRIL MALEATE [Concomitant]
     Indication: HYPERTENSION
     Route: 048
  6. IRON (FERROUS SULFATE) [Concomitant]
     Indication: ANAEMIA
     Route: 048

REACTIONS (2)
  - BLOOD SODIUM DECREASED [None]
  - FALL [None]
